FAERS Safety Report 9922441 (Version 4)
Quarter: 2014Q2

REPORT INFORMATION
  Report Type: Spontaneous
  Country: JP (occurrence: JP)
  Receive Date: 20140225
  Receipt Date: 20140613
  Transmission Date: 20141212
  Serious: Yes (Hospitalization)
  Sender: FDA-Public Use
  Company Number: JP-PFIZER INC-2014048653

PATIENT
  Age: 50 Year
  Sex: Female
  Weight: 57.5 kg

DRUGS (5)
  1. AMLODIN [Suspect]
     Dosage: UNK
     Route: 048
     Dates: start: 20110820
  2. AMLODIN [Suspect]
     Dosage: UNK
     Route: 048
  3. OLMESARTAN MEDOXOMIL [Suspect]
     Indication: HYPERTENSION
     Dosage: UNK
     Route: 048
     Dates: start: 201101, end: 201107
  4. AZELNIDIPINE [Suspect]
     Indication: HYPERTENSION
     Dosage: UNK
     Route: 048
     Dates: start: 201101, end: 201107
  5. LOXONIN [Suspect]
     Dosage: UNK
     Route: 048
     Dates: start: 20110820

REACTIONS (3)
  - Drug-induced liver injury [Recovered/Resolved]
  - Autoimmune hepatitis [Recovered/Resolved]
  - Jaundice [Recovered/Resolved]
